FAERS Safety Report 6911691-5 (Version None)
Quarter: 2010Q3

REPORT INFORMATION
  Report Type: 
  Country: None (occurrence: None)
  Receive Date: 20100806
  Receipt Date: 20100728
  Transmission Date: 20110219
  Serious: Yes (Hospitalization)
  Sender: FDA-Public Use
  Company Number: FR-BAYER-201034409GPV

PATIENT
  Age: 79 Year
  Sex: Female

DRUGS (8)
  1. CIFLOX [Suspect]
     Indication: PRODUCT USED FOR UNKNOWN INDICATION
     Dosage: TOTAL DAILY DOSE: 500 MG  UNIT DOSE: 750 MG
     Route: 048
     Dates: start: 20100602, end: 20100609
  2. TRAMADOL HCL [Suspect]
     Indication: PRODUCT USED FOR UNKNOWN INDICATION
     Dosage: AS USED: 100/2 MG/ML
     Dates: start: 20100606, end: 20100610
  3. DORIBAX [Suspect]
     Indication: PRODUCT USED FOR UNKNOWN INDICATION
     Dates: start: 20100602, end: 20100608
  4. ARIXTRA [Concomitant]
     Dosage: AS USED: 2.5 + 0.5 MG/ML
  5. ADANCOR [Concomitant]
  6. ATACAND [Concomitant]
  7. TRANSIPEG [Concomitant]
  8. SPASFON [Concomitant]

REACTIONS (3)
  - ACUTE GENERALISED EXANTHEMATOUS PUSTULOSIS [None]
  - RASH ERYTHEMATOUS [None]
  - SKIN EXFOLIATION [None]
